FAERS Safety Report 9132508 (Version 2)
Quarter: 2013Q2

REPORT INFORMATION
  Report Type: Spontaneous
  Country: NL (occurrence: NL)
  Receive Date: 20130301
  Receipt Date: 20130614
  Transmission Date: 20140414
  Serious: Yes (Hospitalization)
  Sender: FDA-Public Use
  Company Number: NL-GLAXOSMITHKLINE-B0870772A

PATIENT
  Age: 61 Year
  Sex: Male

DRUGS (4)
  1. TROBALT [Suspect]
     Indication: EPILEPSY
     Dosage: 100MG SEE DOSAGE TEXT
     Dates: start: 201211, end: 20130124
  2. KEPPRA [Concomitant]
     Dosage: 500MG THREE TIMES PER DAY
     Route: 065
     Dates: start: 2001
  3. TEGRETOL [Concomitant]
     Dosage: 400MG THREE TIMES PER DAY
     Route: 065
     Dates: start: 1978
  4. TOPIRAMATE [Concomitant]
     Dosage: 50MG TWICE PER DAY
     Route: 065

REACTIONS (3)
  - Coeliac disease [Unknown]
  - Diarrhoea [Recovered/Resolved]
  - Hypokalaemia [None]
